FAERS Safety Report 10149128 (Version 1)
Quarter: 2014Q2

REPORT INFORMATION
  Report Type: Spontaneous
  Country: TR (occurrence: TR)
  Receive Date: 20140502
  Receipt Date: 20140502
  Transmission Date: 20141212
  Serious: Yes (Other)
  Sender: FDA-Public Use
  Company Number: TR-AMGEN INC.-TURSP2014031661

PATIENT
  Age: 53 Year
  Sex: Female
  Weight: 65 kg

DRUGS (3)
  1. ENBREL [Suspect]
     Indication: PSORIASIS
     Dosage: 50 MG, 2X/WEEK
     Route: 058
     Dates: start: 20140106, end: 20140410
  2. METHOTREXATE [Concomitant]
     Dosage: UNK UNK, UNK
  3. HYPERIUM [Concomitant]
     Dosage: UNK

REACTIONS (1)
  - Hypertensive crisis [Unknown]
